FAERS Safety Report 6986313-8 (Version None)
Quarter: 2010Q3

REPORT INFORMATION
  Report Type: 
  Country: None (occurrence: None)
  Receive Date: 20100915
  Receipt Date: 20090624
  Transmission Date: 20110219
  Serious: No
  Sender: FDA-Public Use
  Company Number: US-WYE-H09903609

PATIENT
  Sex: Male
  Weight: 99.88 kg

DRUGS (3)
  1. PRISTIQ [Suspect]
     Indication: DEPRESSION
     Route: 048
     Dates: start: 20090407, end: 20090504
  2. PRISTIQ [Suspect]
     Route: 048
     Dates: start: 20090505, end: 20090611
  3. PRISTIQ [Suspect]
     Route: 048
     Dates: start: 20090612

REACTIONS (1)
  - URINARY RETENTION [None]
